FAERS Safety Report 25341068 (Version 1)
Quarter: 2025Q2

REPORT INFORMATION
  Report Type: Spontaneous
  Country: US (occurrence: None)
  Receive Date: 20250520
  Receipt Date: 20250520
  Transmission Date: 20250716
  Serious: No
  Sender: FDA-CTU
  Company Number: None

PATIENT
  Sex: Female

DRUGS (2)
  1. LENALIDOMIDE [Suspect]
     Active Substance: LENALIDOMIDE
     Indication: Plasma cell leukaemia
     Route: 048
     Dates: start: 20250204
  2. NINLARO [Suspect]
     Active Substance: IXAZOMIB CITRATE

REACTIONS (2)
  - Pain in extremity [None]
  - Neuropathy peripheral [None]
